FAERS Safety Report 13827695 (Version 1)
Quarter: 2017Q3

REPORT INFORMATION
  Report Type: Report from Study
  Country: US (occurrence: US)
  Receive Date: 20170803
  Receipt Date: 20170803
  Transmission Date: 20171127
  Serious: No
  Sender: FDA-Public Use
  Company Number: PHEH2017US024144

PATIENT
  Sex: Male
  Weight: 9.8 kg

DRUGS (1)
  1. OMNITROPE [Suspect]
     Active Substance: SOMATROPIN
     Indication: HYPOPITUITARISM
     Dosage: 0.3 MG, QD, 7 DAYS/W EEK
     Route: 058
     Dates: start: 201707

REACTIONS (2)
  - Insomnia [Unknown]
  - Faeces discoloured [Unknown]
